FAERS Safety Report 8335889-7 (Version None)
Quarter: 2012Q2

REPORT INFORMATION
  Report Type: 
  Country: None (occurrence: None)
  Receive Date: 20120501
  Receipt Date: 20120501
  Transmission Date: 20120825
  Serious: Yes (Life-Threatening, Hospitalization)
  Sender: FDA-Public Use
  Company Number: None

PATIENT
  Age: 50 Year
  Sex: Female
  Weight: 68.6 kg

DRUGS (1)
  1. AMOXICILLIN [Suspect]
     Indication: INFECTION
     Dosage: 500 MG PO
     Route: 048
     Dates: start: 20120313, end: 20120326

REACTIONS (1)
  - ANAPHYLACTIC REACTION [None]
